FAERS Safety Report 7573314-4 (Version None)
Quarter: 2011Q2

REPORT INFORMATION
  Report Type: 
  Country: None (occurrence: None)
  Receive Date: 20110627
  Receipt Date: 20110613
  Transmission Date: 20111010
  Serious: Yes (Hospitalization)
  Sender: FDA-Public Use
  Company Number: GB-MYLANLABS-2011S1012610

PATIENT
  Age: 2 Year
  Sex: Male

DRUGS (3)
  1. TRIMETHOPRIM [Concomitant]
     Indication: UROSEPSIS
     Route: 048
  2. IBUPROFEN [Suspect]
     Route: 048
  3. ACETAMINOPHEN [Concomitant]
     Indication: UROSEPSIS
     Route: 048

REACTIONS (3)
  - RENAL PAPILLARY NECROSIS [None]
  - RENAL FAILURE [None]
  - URETERIC OBSTRUCTION [None]
